FAERS Safety Report 22138407 (Version 1)
Quarter: 2023Q1

REPORT INFORMATION
  Report Type: Spontaneous
  Country: FR (occurrence: FR)
  Receive Date: 20230326
  Receipt Date: 20230326
  Transmission Date: 20230418
  Serious: Yes (Death)
  Sender: FDA-Public Use
  Company Number: None

PATIENT
  Age: 93 Year
  Sex: Female
  Weight: 67.1 kg

DRUGS (6)
  1. AMOXICILLIN [Suspect]
     Active Substance: AMOXICILLIN
     Indication: COVID-19
     Dosage: 3 GRAM DAILY; 1GX3/D
     Route: 065
     Dates: start: 20230107, end: 20230109
  2. AMOXICILLIN [Suspect]
     Active Substance: AMOXICILLIN
     Dosage: 3 GRAM DAILY; 1GX3/D
     Route: 065
     Dates: start: 20221215, end: 20221220
  3. CLAVULANIC ACID [Suspect]
     Active Substance: CLAVULANIC ACID
     Indication: COVID-19
     Dosage: 3 GRAM DAILY; 1GX3/D
     Route: 065
     Dates: start: 20230107, end: 20230109
  4. CLAVULANIC ACID [Suspect]
     Active Substance: CLAVULANIC ACID
     Dosage: 3 GRAM DAILY; 1GX3/D
     Route: 065
     Dates: start: 20221215, end: 20221220
  5. PIPERACILLIN SODIUM\TAZOBACTAM SODIUM [Suspect]
     Active Substance: PIPERACILLIN SODIUM\TAZOBACTAM SODIUM
     Indication: Staphylococcal infection
     Route: 065
     Dates: start: 20230109, end: 20230127
  6. LANSOPRAZOLE [Concomitant]
     Active Substance: LANSOPRAZOLE
     Indication: Product used for unknown indication
     Dosage: 15MG THEN 30MG
     Route: 065

REACTIONS (1)
  - Agranulocytosis [Fatal]

NARRATIVE: CASE EVENT DATE: 20230102
